FAERS Safety Report 7899076-9 (Version None)
Quarter: 2011Q4

REPORT INFORMATION
  Report Type: 
  Country: None (occurrence: None)
  Receive Date: 20111107
  Receipt Date: 20111028
  Transmission Date: 20120403
  Serious: Yes (Hospitalization, Disabling)
  Sender: FDA-Public Use
  Company Number: US-MERCK-1105USA02542

PATIENT
  Age: 63 Year
  Sex: Female
  Weight: 75 kg

DRUGS (13)
  1. BENICAR [Concomitant]
     Indication: BLOOD PRESSURE
     Route: 065
     Dates: start: 19910101
  2. ALENDRONATE SODIUM [Suspect]
     Indication: OSTEOPOROSIS
     Route: 048
     Dates: start: 20080320, end: 20100701
  3. FOSAMAX [Suspect]
     Route: 048
     Dates: start: 20020702
  4. PRILOSEC [Concomitant]
     Route: 065
     Dates: start: 20010101, end: 20100401
  5. FOSAMAX [Suspect]
     Route: 048
     Dates: start: 20001017, end: 20011115
  6. FOSAMAX [Suspect]
     Route: 048
     Dates: start: 20020702
  7. VITAMINS (UNSPECIFIED) [Concomitant]
     Route: 065
     Dates: start: 20000101
  8. FUROSEMIDE [Concomitant]
     Indication: FLUID RETENTION
     Dosage: APPROX. 1954 - PRESENT
     Route: 065
  9. FOSAMAX [Suspect]
     Indication: OSTEOPOROSIS PROPHYLAXIS
     Route: 048
     Dates: start: 20011115, end: 20020101
  10. FOSAMAX [Suspect]
     Route: 048
     Dates: start: 20001017, end: 20011115
  11. ALENDRONATE SODIUM [Suspect]
     Indication: OSTEOPOROSIS PROPHYLAXIS
     Route: 048
     Dates: start: 20080320, end: 20100701
  12. CLONIDINE [Concomitant]
     Indication: HYPERTENSION
     Route: 065
     Dates: start: 19910101
  13. FOSAMAX [Suspect]
     Indication: OSTEOPOROSIS
     Route: 048
     Dates: start: 20011115, end: 20020101

REACTIONS (34)
  - FEMUR FRACTURE [None]
  - DEPRESSION [None]
  - DIARRHOEA [None]
  - OCCULT BLOOD POSITIVE [None]
  - LOW TURNOVER OSTEOPATHY [None]
  - STRESS FRACTURE [None]
  - ASTHMA [None]
  - GOUT [None]
  - ARRHYTHMIA [None]
  - ARTERIOSCLEROSIS [None]
  - GASTROOESOPHAGEAL REFLUX DISEASE [None]
  - DYSPEPSIA [None]
  - INSOMNIA [None]
  - OSTEOPOROSIS [None]
  - RHINITIS ALLERGIC [None]
  - OEDEMA [None]
  - ARTHRALGIA [None]
  - DYSPNOEA [None]
  - CHRONIC OBSTRUCTIVE PULMONARY DISEASE [None]
  - FALL [None]
  - PSORIASIS [None]
  - CONFUSIONAL STATE [None]
  - COSTOCHONDRITIS [None]
  - HYPOAESTHESIA [None]
  - FRACTURED ISCHIUM [None]
  - IMPAIRED HEALING [None]
  - SPONDYLOLISTHESIS [None]
  - SINUS DISORDER [None]
  - OSTEOPENIA [None]
  - LUMBAR SPINAL STENOSIS [None]
  - CHEST PAIN [None]
  - HEADACHE [None]
  - SYNOVIAL CYST [None]
  - PUBIS FRACTURE [None]
